FAERS Safety Report 9444636 (Version 2)
Quarter: 2014Q1

REPORT INFORMATION
  Report Type: Spontaneous
  Country: US (occurrence: US)
  Receive Date: 20130807
  Receipt Date: 20140117
  Transmission Date: 20141002
  Serious: Yes (Death, Hospitalization)
  Sender: FDA-Public Use
  Company Number: US-B.I. PHARMACEUTICALS,INC./RIDGEFIELD-2013-BI-23844BP

PATIENT
  Age: 82 Year
  Sex: Female
  Weight: 58.97 kg

DRUGS (7)
  1. PRADAXA [Suspect]
     Indication: ATRIAL FIBRILLATION
     Dosage: 75 MG
     Dates: start: 20120130, end: 20130220
  2. VERAPAMIL [Concomitant]
     Dosage: 120 MG
  3. INDERAL [Concomitant]
     Dosage: 20 MG
  4. LACTINEX [Concomitant]
  5. OS-CAL [Concomitant]
  6. PROTONIX [Concomitant]
     Dosage: 40 MG
  7. LISINOPRIL [Concomitant]
     Dosage: 20 MG

REACTIONS (1)
  - Cerebral haemorrhage [Fatal]
